FAERS Safety Report 15366794 (Version 1)
Quarter: 2018Q3

REPORT INFORMATION
  Report Type: Spontaneous
  Country: US (occurrence: US)
  Receive Date: 20180902
  Receipt Date: 20180902
  Transmission Date: 20181010
  Serious: Yes (Disabling)
  Sender: FDA-Public Use
  Company Number: None

PATIENT
  Age: 49 Year
  Sex: Female
  Weight: 87.75 kg

DRUGS (6)
  1. LANSOPRAZOLE. [Suspect]
     Active Substance: LANSOPRAZOLE
     Indication: ULCER
     Route: 060
     Dates: start: 20000101, end: 20180723
  2. TEGRETOL [Concomitant]
     Active Substance: CARBAMAZEPINE
  3. VITAMIN K [Concomitant]
     Active Substance: PHYTONADIONE
  4. FLONASE [Concomitant]
     Active Substance: FLUTICASONE PROPIONATE
  5. VITAMIN D [Concomitant]
     Active Substance: CHOLECALCIFEROL
  6. LANSOPRAZOLE. [Suspect]
     Active Substance: LANSOPRAZOLE
     Indication: EROSIVE OESOPHAGITIS
     Route: 060
     Dates: start: 20000101, end: 20180723

REACTIONS (5)
  - Dysphemia [None]
  - Aphasia [None]
  - Cognitive disorder [None]
  - Memory impairment [None]
  - Therapy cessation [None]

NARRATIVE: CASE EVENT DATE: 20180123
